FAERS Safety Report 9169430 (Version 1)
Quarter: 2013Q1

REPORT INFORMATION
  Report Type: Spontaneous
  Country: CA (occurrence: CA)
  Receive Date: 20130318
  Receipt Date: 20130318
  Transmission Date: 20140127
  Serious: Yes (Disabling, Other)
  Sender: FDA-Public Use
  Company Number: CA-PFIZER INC-2013044374

PATIENT
  Age: 40 Year
  Sex: Female
  Weight: 128 kg

DRUGS (1)
  1. CHAMPIX [Suspect]
     Indication: SMOKING CESSATION THERAPY
     Dosage: UNK
     Dates: start: 200911, end: 20091228

REACTIONS (7)
  - Psychotic disorder [Recovered/Resolved]
  - Illusion [Recovered/Resolved]
  - Patient isolation [Recovered/Resolved]
  - Anxiety [Recovered/Resolved]
  - Dyspnoea [Recovered/Resolved]
  - Disturbance in social behaviour [Recovered/Resolved]
  - Fear [Recovered/Resolved]
